FAERS Safety Report 10957631 (Version 1)
Quarter: 2015Q1

REPORT INFORMATION
  Report Type: Spontaneous
  Country: US (occurrence: None)
  Receive Date: 20150325
  Receipt Date: 20150325
  Transmission Date: 20150721
  Serious: Yes (Life-Threatening, Disabling, Other)
  Sender: FDA-Public Use
  Company Number: None

PATIENT
  Age: 53 Year
  Sex: Female
  Weight: 108.86 kg

DRUGS (14)
  1. X HETZ [Concomitant]
  2. TRADER JOES ACTIVE 50 PLUS VITAMINS [Concomitant]
  3. LISINOPRIL. [Concomitant]
     Active Substance: LISINOPRIL
  4. METROPROLOL [Concomitant]
     Active Substance: METOPROLOL
  5. RANITIDINE [Concomitant]
     Active Substance: RANITIDINE\RANITIDINE HYDROCHLORIDE
  6. FEXOFENADINE [Concomitant]
     Active Substance: FEXOFENADINE\FEXOFENADINE HYDROCHLORIDE
  7. NEXIUM [Concomitant]
     Active Substance: ESOMEPRAZOLE MAGNESIUM
  8. FLOVENT [Suspect]
     Active Substance: FLUTICASONE PROPIONATE
     Indication: ASTHMA
     Dosage: ONE PUFF; INHALED WITH SPACER
     Dates: start: 20150219, end: 20150322
  9. GALZIN [Concomitant]
     Active Substance: ZINC ACETATE
  10. LEVOTHYROXINE [Concomitant]
     Active Substance: LEVOTHYROXINE
  11. PRO AIR HFA [Concomitant]
  12. SUNDOWN BRAND FISH OIL [Concomitant]
  13. SIUNGULAIR [Concomitant]
  14. ALBUTEROL FOR NEBULIZER [Concomitant]

REACTIONS (12)
  - Cough [None]
  - Speech disorder [None]
  - Muscular weakness [None]
  - Sinus headache [None]
  - Vision blurred [None]
  - Decreased appetite [None]
  - Dysstasia [None]
  - Fatigue [None]
  - Stomatitis [None]
  - Oral fungal infection [None]
  - Wheezing [None]
  - Heart rate increased [None]

NARRATIVE: CASE EVENT DATE: 20150324
